FAERS Safety Report 7483746-0 (Version None)
Quarter: 2011Q2

REPORT INFORMATION
  Report Type: 
  Country: None (occurrence: None)
  Receive Date: 20110517
  Receipt Date: 20110503
  Transmission Date: 20111010
  Serious: Yes (Hospitalization)
  Sender: FDA-Public Use
  Company Number: US-ELI_LILLY_AND_COMPANY-US201102005611

PATIENT
  Sex: Female

DRUGS (8)
  1. PROMETHAZINE [Concomitant]
     Dosage: UNK, PRN
  2. LISINOPRIL [Concomitant]
  3. DETROL [Concomitant]
  4. FORTEO [Suspect]
     Indication: OSTEOPOROSIS
     Dosage: 20 UG, DAILY (1/D)
     Dates: start: 20110201, end: 20110414
  5. FORTEO [Suspect]
     Dosage: 20 UG, QD
     Dates: start: 20110417
  6. AMLODIPINE BESYLATE [Concomitant]
  7. MECLIZINE [Concomitant]
     Dosage: UNK, PRN
  8. PANTOPRAZOLE [Concomitant]

REACTIONS (8)
  - THROAT IRRITATION [None]
  - WEIGHT DECREASED [None]
  - NASAL CONGESTION [None]
  - DECREASED APPETITE [None]
  - ORAL CANDIDIASIS [None]
  - MUSCLE SPASMS [None]
  - DEHYDRATION [None]
  - MUCOSAL INFLAMMATION [None]
